FAERS Safety Report 5011666-X (Version None)
Quarter: 2006Q2

REPORT INFORMATION
  Report Type: 
  Country: None (occurrence: None)
  Receive Date: 20060526
  Receipt Date: 20060518
  Transmission Date: 20061013
  Serious: Yes (Death)
  Sender: FDA-Public Use
  Company Number: GB-JNJFOC-20060505382

PATIENT
  Age: 76 Year
  Sex: Female

DRUGS (6)
  1. REMICADE [Suspect]
     Indication: PUSTULAR PSORIASIS
     Route: 042
  2. CYCLOSPORINE [Suspect]
     Indication: PUSTULAR PSORIASIS
     Route: 065
  3. METHOTREXATE [Suspect]
     Indication: PUSTULAR PSORIASIS
     Route: 065
  4. AZATHIOPRINE [Suspect]
     Indication: COLITIS ULCERATIVE
     Route: 065
  5. ACITRETIN [Concomitant]
     Route: 042
  6. HYDROXYUREA [Concomitant]
     Route: 065

REACTIONS (4)
  - COLITIS ULCERATIVE [None]
  - PNEUMONITIS [None]
  - RENAL IMPAIRMENT [None]
  - T-CELL LYMPHOMA [None]
